FAERS Safety Report 11627906 (Version 1)
Quarter: 2015Q4

REPORT INFORMATION
  Report Type: Report from Study
  Country: NL (occurrence: NL)
  Receive Date: 20151014
  Receipt Date: 20151014
  Transmission Date: 20160304
  Serious: Yes (Death, Other)
  Sender: FDA-Public Use
  Company Number: NL-AMGEN-NLDSL2015106026

PATIENT
  Age: 72 Year
  Sex: Female

DRUGS (3)
  1. XGEVA [Suspect]
     Active Substance: DENOSUMAB
     Indication: PROPHYLAXIS
     Dosage: 1.7 ML (120 MG), Q4WK
     Route: 058
  2. CALCI CHEW D3 [Concomitant]
     Active Substance: CALCIUM CARBONATE\CHOLECALCIFEROL
     Dosage: 500 MG/ 400 IE, QD
     Route: 048
  3. XGEVA [Suspect]
     Active Substance: DENOSUMAB
     Dosage: UNK
     Route: 058

REACTIONS (1)
  - Death [Fatal]

NARRATIVE: CASE EVENT DATE: 20151008
